FAERS Safety Report 6417392-4 (Version None)
Quarter: 2009Q4

REPORT INFORMATION
  Report Type: 
  Country: None (occurrence: None)
  Receive Date: 20091028
  Receipt Date: 20091020
  Transmission Date: 20100525
  Serious: Yes (Other)
  Sender: FDA-Public Use
  Company Number: NO-PFIZER INC-2009285513

PATIENT

DRUGS (2)
  1. LIPITOR [Suspect]
     Indication: HYPERCHOLESTEROLAEMIA
     Dosage: 80 MG, UNK
     Route: 048
     Dates: start: 20070701, end: 20080101
  2. ALBYL-E [Concomitant]

REACTIONS (2)
  - ARTHRALGIA [None]
  - GRAND MAL CONVULSION [None]
